FAERS Safety Report 5114283-6 (Version None)
Quarter: 2006Q3

REPORT INFORMATION
  Report Type: 
  Country: None (occurrence: None)
  Receive Date: 20060925
  Receipt Date: 20060915
  Transmission Date: 20061208
  Serious: Yes (Hospitalization)
  Sender: FDA-Public Use
  Company Number: FR-ABBOTT-06P-056-0344292-00

PATIENT
  Sex: Male

DRUGS (12)
  1. KALETRA [Suspect]
     Indication: HIV INFECTION
     Route: 048
     Dates: start: 20060728
  2. EFAVIRENZ [Suspect]
     Indication: HIV INFECTION
     Route: 048
     Dates: start: 20060630, end: 20060727
  3. TRUVADA [Suspect]
     Indication: HIV INFECTION
     Route: 048
     Dates: start: 20060630, end: 20060802
  4. MORPHINE [Suspect]
     Indication: DIARRHOEA
     Route: 048
     Dates: start: 20060707, end: 20060725
  5. MORPHINE [Suspect]
     Indication: UNEVALUABLE EVENT
     Route: 048
     Dates: start: 20060726, end: 20060727
  6. RIFATER [Suspect]
     Indication: TUBERCULOSIS
     Dates: start: 20050512, end: 20060727
  7. ISONIAZID [Suspect]
     Indication: TUBERCULOSIS
     Dates: start: 20050512
  8. PYRAZINAMIDE [Suspect]
     Indication: TUBERCULOSIS
     Dates: start: 20050512
  9. MOXIFLOXACIN HYDROCHLORIDE [Suspect]
     Indication: DRUG USE FOR UNKNOWN INDICATION
     Dates: start: 20060729
  10. LAMIVUDINE + ZIDOVUDINE [Suspect]
     Indication: HIV INFECTION
     Dates: start: 20060802, end: 20060828
  11. BACTRIM [Suspect]
     Indication: ANTIBIOTIC PROPHYLAXIS
     Dates: start: 20060511
  12. ROVALCYTE [Suspect]
     Indication: CYTOMEGALOVIRUS INFECTION
     Dates: start: 20060512, end: 20060822

REACTIONS (8)
  - APLASIA [None]
  - BONE MARROW FAILURE [None]
  - CONFUSIONAL STATE [None]
  - ENCEPHALITIS [None]
  - HALLUCINATION, AUDITORY [None]
  - HALLUCINATION, VISUAL [None]
  - HYPOMAGNESAEMIA [None]
  - RENAL FAILURE [None]
